FAERS Safety Report 9847011 (Version 2)
Quarter: 2015Q1

REPORT INFORMATION
  Report Type: Spontaneous
  Country: FR (occurrence: FR)
  Receive Date: 20140127
  Receipt Date: 20140127
  Transmission Date: 20150721
  Serious: Yes (Life-Threatening, Hospitalization)
  Sender: FDA-Public Use
  Company Number: FR-US-EMD SERONO, INC.-7263863

PATIENT
  Age: 30 Year
  Sex: Female

DRUGS (7)
  1. GONAL-F [Suspect]
     Active Substance: FOLLITROPIN
     Dosage: 300 IU/0.5 ML
     Route: 058
     Dates: start: 20130820, end: 20130828
  2. GONAL-F [Suspect]
     Active Substance: FOLLITROPIN
     Dosage: 300 IU/0.5 ML
     Route: 058
     Dates: start: 20130829, end: 20130906
  3. GONAL-F [Suspect]
     Active Substance: FOLLITROPIN
     Indication: OVULATION INDUCTION
     Dosage: 300 IU/0.5 ML
     Route: 058
     Dates: start: 20130806, end: 20130819
  4. GONAL-F [Suspect]
     Active Substance: FOLLITROPIN
     Dosage: 300 IU/0.5 ML
     Route: 058
     Dates: start: 20130907, end: 20130908
  5. LOVENOX [Concomitant]
     Active Substance: ENOXAPARIN SODIUM
     Indication: PRODUCT USED FOR UNKNOWN INDICATION
     Dosage: 0.4
     Route: 058
     Dates: start: 20130911
  6. OVITRELLE [Suspect]
     Active Substance: CHORIOGONADOTROPIN ALFA
     Indication: PRODUCT USED FOR UNKNOWN INDICATION
     Dosage: 250MCG/0.5ML
     Route: 058
     Dates: start: 20130909, end: 20130909
  7. ORGALUTRAN [Suspect]
     Active Substance: GANIRELIX ACETATE
     Indication: PRODUCT USED FOR UNKNOWN INDICATION
     Dosage: 0.25 MG/0.5 ML
     Route: 058
     Dates: start: 20130907, end: 20130909

REACTIONS (1)
  - Ovarian hyperstimulation syndrome [Recovered/Resolved]

NARRATIVE: CASE EVENT DATE: 20130914
